FAERS Safety Report 17162593 (Version 1)
Quarter: 2019Q4

REPORT INFORMATION
  Report Type: Spontaneous
  Country: US (occurrence: US)
  Receive Date: 20191216
  Receipt Date: 20191216
  Transmission Date: 20200122
  Serious: Yes (Death)
  Sender: FDA-Public Use
  Company Number: None

PATIENT
  Age: 59 Year
  Sex: Male

DRUGS (1)
  1. PROMACTA [Suspect]
     Active Substance: ELTROMBOPAG OLAMINE
     Indication: APLASTIC ANAEMIA
     Dosage: ?          OTHER FREQUENCY:THREE TIMES DAILY;?
     Route: 048
     Dates: start: 20190729, end: 20191212

REACTIONS (1)
  - Death [None]

NARRATIVE: CASE EVENT DATE: 20191212
